FAERS Safety Report 6679783-6 (Version None)
Quarter: 2010Q2

REPORT INFORMATION
  Report Type: 
  Country: None (occurrence: None)
  Receive Date: 20100413
  Receipt Date: 20090724
  Transmission Date: 20101027
  Serious: No
  Sender: FDA-Public Use
  Company Number: US-ASTRAZENECA-2009SE06099

PATIENT
  Age: 77 Year
  Sex: Female

DRUGS (3)
  1. ATENOLOL [Suspect]
     Route: 048
     Dates: start: 20090601
  2. ATENOLOL [Suspect]
     Route: 048
  3. BENICAR [Suspect]
     Indication: HYPERTENSION
     Dosage: 1 PER DAY
     Dates: start: 20080101

REACTIONS (1)
  - ARTHRALGIA [None]
